FAERS Safety Report 5470069-4 (Version None)
Quarter: 2007Q3

REPORT INFORMATION
  Report Type: 
  Country: None (occurrence: None)
  Receive Date: 20070927
  Receipt Date: 20070917
  Transmission Date: 20080115
  Serious: Yes (Death)
  Sender: FDA-Public Use
  Company Number: AU-BOEHRINGER INGELHEIM PHARMACEUTICALS, INC.-2007-BP-21045AU

PATIENT
  Sex: Male
  Weight: 86 kg

DRUGS (5)
  1. ASPIRIN AND DIPYRIDAMOLE [Suspect]
     Indication: ADVERSE EVENT
     Dosage: 400/50 MG/MG
     Route: 048
     Dates: start: 20070501, end: 20070830
  2. FOSAMAX [Suspect]
     Indication: OSTEOPOROSIS
     Route: 048
     Dates: start: 20040903
  3. FLOMAXTRA [Concomitant]
     Indication: BENIGN PROSTATIC HYPERPLASIA
     Route: 048
     Dates: start: 20070718
  4. OROXINE [Concomitant]
     Indication: HYPOTHYROIDISM
     Route: 048
  5. MADOPAR [Concomitant]
     Indication: PARKINSON'S DISEASE
     Dosage: 300/75 MG/MG
     Route: 048
     Dates: start: 20050622

REACTIONS (1)
  - GASTROINTESTINAL HAEMORRHAGE [None]
